FAERS Safety Report 20735736 (Version 1)
Quarter: 2022Q2

REPORT INFORMATION
  Report Type: Spontaneous
  Country: US (occurrence: US)
  Receive Date: 20220421
  Receipt Date: 20220421
  Transmission Date: 20220720
  Serious: Yes (Hospitalization)
  Sender: FDA-Public Use
  Company Number: US-BRISTOL-MYERS SQUIBB COMPANY-2022-020776

PATIENT
  Age: 70 Year
  Sex: Male
  Weight: 94.80 kg

DRUGS (1)
  1. REVLIMID [Suspect]
     Active Substance: LENALIDOMIDE
     Indication: Plasma cell myeloma
     Dosage: DAILY FOR 14DAY AND 7 DAYS OFF.
     Route: 048
     Dates: start: 202202

REACTIONS (2)
  - Adverse event [Unknown]
  - Off label use [Unknown]
